FAERS Safety Report 6047157-7 (Version None)
Quarter: 2009Q1

REPORT INFORMATION
  Report Type: 
  Country: None (occurrence: None)
  Receive Date: 20090122
  Receipt Date: 20090120
  Transmission Date: 20090719
  Serious: Yes (Death, Hospitalization, Other)
  Sender: FDA-Public Use
  Company Number: PHHY2009BR01835

PATIENT
  Sex: Female
  Weight: 95 kg

DRUGS (1)
  1. DIOVAN [Suspect]
     Indication: HYPERTENSION
     Dosage: 80 MG, BID
     Route: 048

REACTIONS (9)
  - ASPIRATION [None]
  - CEREBROVASCULAR ACCIDENT [None]
  - EATING DISORDER [None]
  - GASTROINTESTINAL TUBE INSERTION [None]
  - GENERAL PHYSICAL HEALTH DETERIORATION [None]
  - MULTI-ORGAN FAILURE [None]
  - SPINAL DISORDER [None]
  - VOMITING [None]
  - WHEELCHAIR USER [None]
